FAERS Safety Report 11159434 (Version 2)
Quarter: 2015Q3

REPORT INFORMATION
  Report Type: Spontaneous
  Country: US (occurrence: US)
  Receive Date: 20150603
  Receipt Date: 20150717
  Transmission Date: 20151125
  Serious: No
  Sender: FDA-Public Use
  Company Number: US-GLAXOSMITHKLINE-US2015GSK062974

PATIENT
  Age: 86 Year
  Sex: Female
  Weight: 61.22 kg

DRUGS (2)
  1. ZOVIRAX [Suspect]
     Active Substance: ACYCLOVIR
     Indication: ORAL HERPES
     Dosage: 1 APPLICATION, EVERY 2 HOURS
     Route: 061
     Dates: start: 20150411, end: 201504
  2. ABREVA [Suspect]
     Active Substance: DOCOSANOL
     Indication: ORAL HERPES

REACTIONS (5)
  - Drug ineffective [Unknown]
  - Product quality issue [Unknown]
  - Scar [Unknown]
  - Scab [Unknown]
  - Skin lesion [Unknown]

NARRATIVE: CASE EVENT DATE: 20150415
